FAERS Safety Report 5399848-9 (Version None)
Quarter: 2007Q3

REPORT INFORMATION
  Report Type: 
  Country: None (occurrence: None)
  Receive Date: 20070730
  Receipt Date: 20070720
  Transmission Date: 20080115
  Serious: Yes (Other)
  Sender: FDA-Public Use
  Company Number: PHEH2006US08849

PATIENT
  Age: 72 Year
  Sex: Female
  Weight: 58.503 kg

DRUGS (3)
  1. ESTRADERM [Suspect]
     Indication: HORMONE REPLACEMENT THERAPY
     Route: 062
     Dates: start: 19940101, end: 20040101
  2. CLIMARA [Suspect]
  3. PREMARIN [Suspect]
     Indication: MENOPAUSAL SYMPTOMS

REACTIONS (34)
  - ABDOMINAL PAIN [None]
  - ABDOMINAL PAIN UPPER [None]
  - ADNEXA UTERI MASS [None]
  - ADRENAL MASS [None]
  - BACK INJURY [None]
  - CARBOHYDRATE ANTIGEN 125 INCREASED [None]
  - CHOLECYSTECTOMY [None]
  - CHOLELITHIASIS [None]
  - COLON POLYPECTOMY [None]
  - COLONIC POLYP [None]
  - CONSTIPATION [None]
  - DIVERTICULUM INTESTINAL [None]
  - DYSPNOEA EXERTIONAL [None]
  - FATIGUE [None]
  - GASTRITIS [None]
  - GASTROOESOPHAGEAL REFLUX DISEASE [None]
  - HELICOBACTER GASTRITIS [None]
  - HYPERTENSION [None]
  - INTERVERTEBRAL DISC DEGENERATION [None]
  - INTERVERTEBRAL DISC PROTRUSION [None]
  - LYMPHADENOPATHY [None]
  - METAPLASIA [None]
  - MITRAL VALVE INCOMPETENCE [None]
  - MITRAL VALVE REPAIR [None]
  - MYOFASCIAL PAIN SYNDROME [None]
  - NAUSEA [None]
  - OMENTECTOMY [None]
  - OOPHORECTOMY BILATERAL [None]
  - OVARIAN CANCER [None]
  - OVARIAN CANCER RECURRENT [None]
  - POSTOPERATIVE ILEUS [None]
  - SPINAL CLAUDICATION [None]
  - SPINAL LAMINECTOMY [None]
  - WEIGHT DECREASED [None]
